FAERS Safety Report 5775385-4 (Version None)
Quarter: 2008Q2

REPORT INFORMATION
  Report Type: 
  Country: None (occurrence: None)
  Receive Date: 20080617
  Receipt Date: 20080605
  Transmission Date: 20081010
  Serious: Yes (Hospitalization)
  Sender: FDA-Public Use
  Company Number: US-ROCHE-568578

PATIENT
  Age: 71 Year
  Sex: Female

DRUGS (2)
  1. BONIVA [Suspect]
     Indication: OSTEOPOROSIS
     Route: 065
     Dates: start: 20070601
  2. BONIVA [Suspect]
     Dosage: RESTARTED IN JUNE 2008
     Route: 065

REACTIONS (2)
  - MENISCUS LESION [None]
  - MUSCULOSKELETAL PAIN [None]
